FAERS Safety Report 8789399 (Version 1)
Quarter: 2012Q4

REPORT INFORMATION
  Report Type: Spontaneous
  Country: US (occurrence: None)
  Receive Date: 20120910
  Receipt Date: 20120910
  Transmission Date: 20130627
  Serious: Yes (Other)
  Sender: FDA-Public Use
  Company Number: None

PATIENT
  Age: 70 Year
  Sex: Female
  Weight: 88.45 kg

DRUGS (2)
  1. MONTELUKAST [Suspect]
     Route: 048
     Dates: start: 20120812, end: 20120812
  2. MONTELUKAST [Suspect]
     Dates: start: 20120821, end: 20120821

REACTIONS (3)
  - Dizziness [None]
  - Vertigo positional [None]
  - Product substitution issue [None]
